FAERS Safety Report 4500926-4 (Version None)
Quarter: 2004Q4

REPORT INFORMATION
  Report Type: 
  Country: None (occurrence: None)
  Receive Date: 20041110
  Receipt Date: 20041027
  Transmission Date: 20050328
  Serious: Yes (Hospitalization, Other)
  Sender: FDA-Public Use
  Company Number: 2004-04667

PATIENT
  Sex: Male

DRUGS (1)
  1. QUININE SULFATE (WATSON LABORATORIES) (QUININE SULFATE) CAPSULE, 325MG [Suspect]
     Indication: NIGHT CRAMPS
     Dosage: ORAL
     Route: 048
     Dates: start: 20021023, end: 20021023

REACTIONS (11)
  - ABDOMINAL PAIN [None]
  - ASTHENIA [None]
  - CHILLS [None]
  - DIARRHOEA [None]
  - HAEMOLYTIC URAEMIC SYNDROME [None]
  - NAUSEA [None]
  - OFF LABEL USE [None]
  - RENAL FAILURE CHRONIC [None]
  - RENAL TRANSPLANT [None]
  - THROMBOCYTOPENIC PURPURA [None]
  - VOMITING [None]
